FAERS Safety Report 9458669 (Version 1)
Quarter: 2013Q3

REPORT INFORMATION
  Report Type: Spontaneous
  Country: US (occurrence: None)
  Receive Date: 20130813
  Receipt Date: 20130813
  Transmission Date: 20140515
  Serious: Yes (Life-Threatening, Hospitalization)
  Sender: FDA-Public Use
  Company Number: None

PATIENT
  Age: 78 Year
  Sex: Female
  Weight: 60.78 kg

DRUGS (1)
  1. SULFARMETHOXAGE 800-160 MCG MUTURAL PHA/SEE ATTACHED [Suspect]
     Indication: CYSTITIS
     Dates: start: 20130603

REACTIONS (1)
  - Stevens-Johnson syndrome [None]
